FAERS Safety Report 18339140 (Version 2)
Quarter: 2020Q4

REPORT INFORMATION
  Report Type: Spontaneous
  Country: US (occurrence: US)
  Receive Date: 20201002
  Receipt Date: 20201002
  Transmission Date: 20210113
  Serious: No
  Sender: FDA-Public Use
  Company Number: US-ALKERMES INC.-ALK-2020-004302

PATIENT
  Age: 29 Year
  Sex: Male

DRUGS (3)
  1. OTHER THERAPEUTIC PRODUCTS [Concomitant]
     Active Substance: UNSPECIFIED INGREDIENT
     Indication: PRODUCT USED FOR UNKNOWN INDICATION
     Dosage: 20 MILLIGRAM, QD
     Route: 048
     Dates: start: 202009, end: 202009
  2. ARISTADA INITIO [Suspect]
     Active Substance: ARIPIPRAZOLE LAUROXIL
     Indication: BIPOLAR II DISORDER
     Dosage: 675 MILLIGRAM, ONE TIME DOSE
     Route: 030
     Dates: start: 20200910, end: 20200910
  3. ARISTADA [Suspect]
     Active Substance: ARIPIPRAZOLE LAUROXIL
     Indication: BIPOLAR II DISORDER
     Dosage: 1064 MILLIGRAM, Q8WK
     Route: 030
     Dates: start: 20200910

REACTIONS (12)
  - Somnolence [Not Recovered/Not Resolved]
  - Hunger [Recovering/Resolving]
  - Nervousness [Recovering/Resolving]
  - Off label use [Not Recovered/Not Resolved]
  - Product administration error [Recovered/Resolved]
  - Headache [Recovered/Resolved]
  - Insomnia [Recovered/Resolved]
  - Anxiety [Recovering/Resolving]
  - Dizziness [Recovering/Resolving]
  - Product administered at inappropriate site [Recovered/Resolved]
  - Injection site pain [Recovered/Resolved]
  - Restlessness [Recovering/Resolving]

NARRATIVE: CASE EVENT DATE: 202009
